FAERS Safety Report 4907802-3 (Version None)
Quarter: 2006Q1

REPORT INFORMATION
  Report Type: 
  Country: None (occurrence: None)
  Receive Date: 20060210
  Receipt Date: 20060127
  Transmission Date: 20060701
  Serious: Yes (Hospitalization)
  Sender: FDA-Public Use
  Company Number: SG-RB-2759-2006

PATIENT
  Age: 48 Year
  Sex: Male

DRUGS (1)
  1. BUPRENORPHINE HCL [Suspect]
     Indication: DRUG USE FOR UNKNOWN INDICATION
     Route: 042

REACTIONS (3)
  - ABNORMAL PALMAR/PLANTAR CREASES [None]
  - GANGRENE [None]
  - PERIPHERAL ISCHAEMIA [None]
